FAERS Safety Report 19230860 (Version 4)
Quarter: 2021Q3

REPORT INFORMATION
  Report Type: Spontaneous
  Country: US (occurrence: US)
  Receive Date: 20210507
  Receipt Date: 20210716
  Transmission Date: 20211014
  Serious: Yes (Other)
  Sender: FDA-Public Use
  Company Number: US-DSJP-DSU-2021-113490

PATIENT
  Age: 65 Year
  Sex: Female

DRUGS (5)
  1. OMEPRAZOLE. [Concomitant]
     Active Substance: OMEPRAZOLE
     Indication: GASTROOESOPHAGEAL REFLUX DISEASE
     Dosage: 20 MG, QD
     Route: 065
  2. ENHERTU [Suspect]
     Active Substance: FAM-TRASTUZUMAB DERUXTECAN-NXKI
     Indication: HER2 POSITIVE BREAST CANCER
     Dosage: 5.6 MG/KG, ONCE EVERY 3 WK
     Route: 042
     Dates: start: 20200629
  3. FENTANYL. [Concomitant]
     Active Substance: FENTANYL
     Indication: PAIN
     Dosage: 50 MG/HR, ONCE EVERY 3 D
     Route: 065
     Dates: start: 2015
  4. ENHERTU [Suspect]
     Active Substance: FAM-TRASTUZUMAB DERUXTECAN-NXKI
     Indication: BREAST CANCER METASTATIC
     Dosage: 4 MG/KG, ONCE EVERY 3 WK
     Route: 042
     Dates: start: 20210105, end: 20210216
  5. CALCIUM [Concomitant]
     Active Substance: CALCIUM
     Indication: SUPPLEMENTATION THERAPY
     Dosage: 600 UNK, QD
     Route: 048

REACTIONS (7)
  - Fatigue [Recovering/Resolving]
  - Wheezing [Recovering/Resolving]
  - Oedema [Recovered/Resolved]
  - Weight increased [Recovered/Resolved]
  - Dyspnoea [Recovering/Resolving]
  - Interstitial lung disease [Recovered/Resolved]
  - Weight decreased [Recovered/Resolved]

NARRATIVE: CASE EVENT DATE: 202011
